FAERS Safety Report 9479126 (Version 1)
Quarter: 2013Q3

REPORT INFORMATION
  Report Type: Spontaneous
  Country: US (occurrence: US)
  Receive Date: 20130827
  Receipt Date: 20130827
  Transmission Date: 20140515
  Serious: Yes (Other)
  Sender: FDA-Public Use
  Company Number: US-ASTRAZENECA-2013SE64368

PATIENT
  Sex: Female
  Weight: 72.6 kg

DRUGS (6)
  1. NEXIUM [Suspect]
     Indication: GASTROOESOPHAGEAL REFLUX DISEASE
     Route: 048
     Dates: start: 2005, end: 2008
  2. NEXIUM [Suspect]
     Indication: GASTRIC INFECTION
     Route: 048
     Dates: start: 2005, end: 2008
  3. PRILOSEC [Suspect]
     Indication: GASTROOESOPHAGEAL REFLUX DISEASE
     Dosage: UNKNOWN DAILY
     Route: 048
     Dates: start: 2008
  4. ATACAND PLUS [Suspect]
     Indication: HYPERTENSION
     Route: 048
     Dates: start: 2013
  5. CHLORDIAZETOXIDE CLIDENIUM [Concomitant]
     Indication: ABDOMINAL PAIN UPPER
     Dosage: UNKNOWN
     Dates: start: 2013
  6. BONIVA [Concomitant]
     Indication: OSTEOPOROSIS
     Dosage: UNKNOWN MONTH
     Route: 048
     Dates: start: 2010

REACTIONS (11)
  - Diverticulitis [Not Recovered/Not Resolved]
  - Polyp [Unknown]
  - Abdominal pain upper [Not Recovered/Not Resolved]
  - Memory impairment [Not Recovered/Not Resolved]
  - Scar [Recovering/Resolving]
  - Gastrooesophageal reflux disease [Not Recovered/Not Resolved]
  - Chest pain [Unknown]
  - Drug ineffective [Unknown]
  - Osteoporosis [Unknown]
  - Migraine [Unknown]
  - Intentional drug misuse [Unknown]
